FAERS Safety Report 13210952 (Version 1)
Quarter: 2017Q1

REPORT INFORMATION
  Report Type: Spontaneous
  Country: US (occurrence: US)
  Receive Date: 20170210
  Receipt Date: 20170210
  Transmission Date: 20170428
  Serious: Yes (Hospitalization)
  Sender: FDA-Public Use
  Company Number: None

PATIENT
  Age: 52 Year
  Sex: Male
  Weight: 139.8 kg

DRUGS (1)
  1. CYTARABINE. [Suspect]
     Active Substance: CYTARABINE
     Dates: end: 20170207

REACTIONS (4)
  - Therapy cessation [None]
  - Lower respiratory tract congestion [None]
  - Hypotension [None]
  - Cough [None]

NARRATIVE: CASE EVENT DATE: 20170208
